FAERS Safety Report 9789926 (Version 2)
Quarter: 2014Q1

REPORT INFORMATION
  Report Type: Spontaneous
  Country: IT (occurrence: None)
  Receive Date: 20131227
  Receipt Date: 20140106
  Transmission Date: 20141002
  Serious: Yes (Hospitalization)
  Sender: FDA-Public Use
  Company Number: AUR-APL-2013-10678

PATIENT
  Age: 35 Year
  Sex: Male

DRUGS (1)
  1. PAROXETINE [Suspect]
     Indication: DEPRESSION
     Route: 048
     Dates: start: 20130901, end: 20130914

REACTIONS (7)
  - Asthenia [None]
  - Cold sweat [None]
  - Dyspnoea [None]
  - Nausea [None]
  - Syncope [None]
  - Vision blurred [None]
  - Faeces discoloured [None]
